FAERS Safety Report 9108878 (Version 1)
Quarter: 2013Q1

REPORT INFORMATION
  Report Type: Report from Study
  Country: US (occurrence: US)
  Receive Date: 20130222
  Receipt Date: 20130222
  Transmission Date: 20140127
  Serious: Yes (Hospitalization)
  Sender: FDA-Public Use
  Company Number: US-ABBOTT-13P-163-1051641-00

PATIENT
  Age: 55 Year
  Sex: Male

DRUGS (1)
  1. HUMIRA [Suspect]
     Indication: POLYARTHRITIS
     Dosage: 40MG(0.8ML) EVERY WEEK
     Route: 058

REACTIONS (2)
  - Intra-abdominal haemorrhage [Recovering/Resolving]
  - Gastric ulcer [Recovering/Resolving]
